FAERS Safety Report 12739906 (Version 3)
Quarter: 2016Q4

REPORT INFORMATION
  Report Type: Spontaneous
  Country: CH (occurrence: CH)
  Receive Date: 20160913
  Receipt Date: 20161121
  Transmission Date: 20170207
  Serious: Yes (Death, Hospitalization, Other)
  Sender: FDA-Public Use
  Company Number: CH-GILEAD-2016-0232219

PATIENT
  Age: 58 Year
  Sex: Female

DRUGS (10)
  1. DACLATASVIR. [Concomitant]
     Active Substance: DACLATASVIR
     Indication: HEPATITIS C
     Dosage: 60 MG, UNK
     Route: 048
     Dates: start: 20160719, end: 201608
  2. NOVALGIN [Concomitant]
     Active Substance: METAMIZOLE SODIUM
  3. METOLAZON [Concomitant]
     Active Substance: METOLAZONE
  4. SOMNIUM                            /01097801/ [Concomitant]
     Active Substance: AVENA SATIVA FLOWERING TOP\ESCHSCHOLZIA CALIFORNICA\HOPS\MAGNESIUM PHOSPHATE, DIBASIC\PASSIFLORA INCARNATA FLOWER\POTASSIUM PHOSPHATE, DIBASIC\SODIUM PHOSPHATE, DIBASIC, ANHYDROUS\VALERIAN
  5. KETALGIN (METHADONE) [Concomitant]
     Active Substance: METHADONE HYDROCHLORIDE
  6. DISTRANEURIN                       /00027501/ [Concomitant]
     Active Substance: CLOMETHIAZOLE
  7. ALDACTONE [Concomitant]
     Active Substance: SPIRONOLACTONE
  8. PANTOZOL [Concomitant]
     Active Substance: PANTOPRAZOLE SODIUM
  9. FLUOXETIN AXAPHARM [Concomitant]
  10. SOVALDI [Suspect]
     Active Substance: SOFOSBUVIR
     Indication: HEPATITIS C
     Dosage: 400 MG, UNK
     Route: 048
     Dates: start: 20160719, end: 201608

REACTIONS (3)
  - Arthritis bacterial [Not Recovered/Not Resolved]
  - Septic shock [Fatal]
  - Osteomyelitis [Not Recovered/Not Resolved]

NARRATIVE: CASE EVENT DATE: 201608
